FAERS Safety Report 5731339-5 (Version None)
Quarter: 2008Q2

REPORT INFORMATION
  Report Type: 
  Country: None (occurrence: None)
  Receive Date: 20080506
  Receipt Date: 20080428
  Transmission Date: 20081010
  Serious: Yes (Hospitalization)
  Sender: FDA-Public Use
  Company Number: 163-21880-08021369

PATIENT
  Age: 68 Year
  Sex: Male

DRUGS (13)
  1. REVLIMID [Suspect]
     Indication: MANTLE CELL LYMPHOMA
     Dosage: 20 MG, DAILY, ORAL
     Route: 048
     Dates: start: 20080214, end: 20080216
  2. RITUXAN [Suspect]
     Indication: MANTLE CELL LYMPHOMA
     Dates: start: 20080214
  3. CLARITIN-D (NARINE REPETABS) (TABLETS) [Concomitant]
  4. EUCERIN CREAM (EUCERIN CREME) [Concomitant]
  5. CALCIUM PLUS D (VITACAL) (TABLETS) [Concomitant]
  6. DOXAZOSIN (DOXAZOSIN) [Concomitant]
  7. ECHINACEA (ECHINACEA EXTRACT) (TABLETS) [Concomitant]
  8. HYDROCODONE/APAP (PROCET /USA/) [Concomitant]
  9. METFORMIN HCL [Concomitant]
  10. MULTIVITAMINS (MULTIVITAMINS) (TABLETS) [Concomitant]
  11. NEURONTIN [Concomitant]
  12. PREVACID [Concomitant]
  13. VITAMIN B COMPLEX (B-KOMPLEX ^LECIVA^) (TABLETS) [Concomitant]

REACTIONS (7)
  - ANGIOEDEMA [None]
  - APPETITE DISORDER [None]
  - DIARRHOEA [None]
  - DYSURIA [None]
  - ERECTILE DYSFUNCTION [None]
  - FATIGUE [None]
  - VISION BLURRED [None]
